FAERS Safety Report 5981081-0 (Version None)
Quarter: 2008Q4

REPORT INFORMATION
  Report Type: 
  Country: None (occurrence: None)
  Receive Date: 20081205
  Receipt Date: 20081125
  Transmission Date: 20090506
  Serious: Yes (Death, Other)
  Sender: FDA-Public Use
  Company Number: CA-PURDUE-CAN_2008_0000860

PATIENT
  Age: 33 Year
  Sex: Male

DRUGS (3)
  1. MORPHINE SULFATE [Suspect]
     Indication: DRUG USE FOR UNKNOWN INDICATION
  2. METHADONE HCL [Suspect]
     Indication: DRUG DEPENDENCE
     Dosage: 30 MG, UNK
     Dates: start: 20070325, end: 20070326
  3. METHADONE HCL [Suspect]
     Dosage: 20 MG, UNK
     Dates: start: 20070301, end: 20070324

REACTIONS (4)
  - DRUG DEPENDENCE [None]
  - EUPHORIC MOOD [None]
  - GAIT DISTURBANCE [None]
  - OVERDOSE [None]
